FAERS Safety Report 23719862 (Version 1)
Quarter: 2024Q2

REPORT INFORMATION
  Report Type: Spontaneous
  Country: CN (occurrence: CN)
  Receive Date: 20240408
  Receipt Date: 20240408
  Transmission Date: 20240715
  Serious: Yes (Other)
  Sender: FDA-Public Use
  Company Number: CN-ELI_LILLY_AND_COMPANY-CN202403017914

PATIENT
  Age: 55 Year
  Sex: Male
  Weight: 67 kg

DRUGS (2)
  1. ALIMTA [Suspect]
     Active Substance: PEMETREXED DISODIUM
     Indication: Non-small cell lung cancer
     Dosage: 0.96 G, SINGLE
     Route: 041
     Dates: start: 20240323, end: 20240323
  2. ALIMTA [Suspect]
     Active Substance: PEMETREXED DISODIUM
     Dosage: 0.96 G, SINGLE
     Route: 041
     Dates: start: 20240323

REACTIONS (1)
  - Seizure [Recovered/Resolved]

NARRATIVE: CASE EVENT DATE: 20240323
